FAERS Safety Report 7984224-2 (Version None)
Quarter: 2011Q4

REPORT INFORMATION
  Report Type: 
  Country: None (occurrence: None)
  Receive Date: 20111216
  Receipt Date: 20111214
  Transmission Date: 20120403
  Serious: Yes (Other)
  Sender: FDA-Public Use
  Company Number: VE-BAYER-2011-115350

PATIENT
  Age: 18 Year
  Sex: Female

DRUGS (2)
  1. YASMIN [Suspect]
     Indication: CONTRACEPTION
     Dosage: UNK
     Route: 048
     Dates: start: 20110801
  2. ATAMEL [Concomitant]
     Route: 048

REACTIONS (1)
  - UROGENITAL HAEMORRHAGE [None]
